FAERS Safety Report 10156707 (Version 1)
Quarter: 2014Q2

REPORT INFORMATION
  Report Type: Spontaneous
  Country: US (occurrence: None)
  Receive Date: 20140506
  Receipt Date: 20140506
  Transmission Date: 20141212
  Serious: Yes (Hospitalization)
  Sender: FDA-Public Use
  Company Number: None

PATIENT
  Age: 67 Year
  Sex: Male

DRUGS (8)
  1. LINEZOLID [Suspect]
     Indication: INFECTION
     Route: 048
     Dates: start: 20130304, end: 20130314
  2. DONEPEZIL [Concomitant]
  3. GABAPENTIN [Concomitant]
  4. PIPERACILLIN/TOZOBACTAM [Concomitant]
  5. QUETIAPINE [Concomitant]
  6. TOSUVASTATIN [Concomitant]
  7. BUPROPION [Concomitant]
  8. TRAZODONE [Concomitant]

REACTIONS (3)
  - Hypertension [None]
  - Hyperreflexia [None]
  - Pyrexia [None]
